FAERS Safety Report 19739872 (Version 1)
Quarter: 2021Q3

REPORT INFORMATION
  Report Type: Spontaneous
  Country: IE (occurrence: IE)
  Receive Date: 20210823
  Receipt Date: 20210823
  Transmission Date: 20211014
  Serious: Yes (Other)
  Sender: FDA-Public Use
  Company Number: IE-AMICI-2021AMILIT00004

PATIENT
  Age: 32 Year
  Sex: Female

DRUGS (7)
  1. NICOTINAMIDE [Interacting]
     Active Substance: NIACINAMIDE
     Indication: PEMPHIGUS
     Route: 065
  2. FLUCLOXACILLIN [Interacting]
     Active Substance: FLUCLOXACILLIN
     Indication: PRURITUS
     Route: 048
  3. TERBINAFINE. [Interacting]
     Active Substance: TERBINAFINE
     Indication: PRURITUS
     Route: 065
  4. BETAMETHASONE. [Interacting]
     Active Substance: BETAMETHASONE
     Indication: RASH PRURITIC
     Route: 061
  5. DICLOFENAC POTASSIUM. [Suspect]
     Active Substance: DICLOFENAC POTASSIUM
     Indication: PRODUCT USED FOR UNKNOWN INDICATION
     Route: 061
  6. CLOBETASOL PROPIONATE. [Interacting]
     Active Substance: CLOBETASOL PROPIONATE
     Indication: PEMPHIGUS
     Route: 061
  7. DOXYCYCLINE. [Interacting]
     Active Substance: DOXYCYCLINE
     Indication: PEMPHIGUS
     Route: 048

REACTIONS (7)
  - Pemphigus [Recovered/Resolved]
  - Rash pruritic [Recovered/Resolved]
  - Blister [Recovered/Resolved]
  - Rash erythematous [Recovered/Resolved]
  - Rash papulosquamous [Recovered/Resolved]
  - Skin exfoliation [Recovered/Resolved]
  - Rash [Recovered/Resolved]
